FAERS Safety Report 5363663-2 (Version None)
Quarter: 2007Q2

REPORT INFORMATION
  Report Type: 
  Country: None (occurrence: None)
  Receive Date: 20070618
  Receipt Date: 20070618
  Transmission Date: 20071010
  Serious: Yes (Life-Threatening, Hospitalization)
  Sender: FDA-Public Use
  Company Number: None

PATIENT
  Sex: Male
  Weight: 43.0917 kg

DRUGS (1)
  1. STRATTERA [Suspect]
     Indication: ATTENTION DEFICIT/HYPERACTIVITY DISORDER
     Dosage: 40MG 1/DAY PO
     Route: 048
     Dates: start: 20070220, end: 20070607

REACTIONS (6)
  - AGGRESSION [None]
  - ANGER [None]
  - DEPRESSION [None]
  - DRUG EFFECT DECREASED [None]
  - SUICIDAL IDEATION [None]
  - SUICIDE ATTEMPT [None]
